FAERS Safety Report 7299991-3 (Version None)
Quarter: 2011Q1

REPORT INFORMATION
  Report Type: 
  Country: None (occurrence: None)
  Receive Date: 20110208
  Receipt Date: 20110124
  Transmission Date: 20110831
  Serious: Yes (Other)
  Sender: FDA-Public Use
  Company Number: 2011AT000040

PATIENT
  Sex: Male
  Weight: 3.6 kg

DRUGS (1)
  1. ALPROSTADIL [Suspect]
     Indication: PRODUCT USED FOR UNKNOWN INDICATION
     Dosage: 0.1 UG/KG 1X/MIN;

REACTIONS (2)
  - BONE DISORDER [None]
  - PO2 DECREASED [None]
